FAERS Safety Report 24580246 (Version 1)
Quarter: 2024Q4

REPORT INFORMATION
  Report Type: Spontaneous
  Country: CN (occurrence: CN)
  Receive Date: 20241105
  Receipt Date: 20241105
  Transmission Date: 20250115
  Serious: Yes (Other)
  Sender: PFIZER
  Company Number: CN-PFIZER INC-PV202400141098

PATIENT
  Age: 67 Year
  Sex: Female
  Weight: 45 kg

DRUGS (5)
  1. CEFOPERAZONE SODIUM\SULBACTAM SODIUM [Suspect]
     Active Substance: CEFOPERAZONE SODIUM\SULBACTAM SODIUM
     Indication: Neuromyelitis optica spectrum disorder
     Dosage: 3 G, 3X/DAY (Q8H)
     Route: 041
     Dates: start: 20241023, end: 20241028
  2. CEFOPERAZONE SODIUM\SULBACTAM SODIUM [Suspect]
     Active Substance: CEFOPERAZONE SODIUM\SULBACTAM SODIUM
     Indication: Urinary tract infection
  3. ZYVOX [Suspect]
     Active Substance: LINEZOLID
     Indication: Neuromyelitis optica spectrum disorder
     Dosage: 600 MG, 2X/DAY
     Dates: start: 20241023, end: 20241028
  4. ZYVOX [Suspect]
     Active Substance: LINEZOLID
     Indication: Urinary tract infection
  5. SODIUM CHLORIDE [Concomitant]
     Active Substance: SODIUM CHLORIDE
     Dosage: 100 ML, 3X/DAY (0.9 SODIUM CHLORIDE + SULPERAZON)
     Dates: start: 20241023, end: 20241028

REACTIONS (4)
  - Full blood count decreased [Unknown]
  - Off label use [Unknown]
  - Off label use [Unknown]
  - Off label use [Unknown]

NARRATIVE: CASE EVENT DATE: 20241023
